FAERS Safety Report 13920834 (Version 1)
Quarter: 2017Q3

REPORT INFORMATION
  Report Type: Spontaneous
  Country: US (occurrence: US)
  Receive Date: 20170830
  Receipt Date: 20170830
  Transmission Date: 20171127
  Serious: Yes (Hospitalization)
  Sender: FDA-Public Use
  Company Number: None

PATIENT
  Sex: Male
  Weight: 99 kg

DRUGS (2)
  1. BRILINTA [Suspect]
     Active Substance: TICAGRELOR
     Indication: MYOCARDIAL INFARCTION
     Dates: start: 20170529, end: 20170616
  2. BRILINTA [Suspect]
     Active Substance: TICAGRELOR
     Indication: STENT PLACEMENT
     Dates: start: 20170529, end: 20170616

REACTIONS (5)
  - Haemoglobin decreased [None]
  - Therapy cessation [None]
  - Blood glucose increased [None]
  - Renal impairment [None]
  - Dyspnoea [None]

NARRATIVE: CASE EVENT DATE: 20170616
